FAERS Safety Report 4426285-3 (Version None)
Quarter: 2004Q3

REPORT INFORMATION
  Report Type: 
  Country: None (occurrence: None)
  Receive Date: 20040811
  Receipt Date: 20040802
  Transmission Date: 20050211
  Serious: Yes (Death, Hospitalization)
  Sender: FDA-Public Use
  Company Number: 2004-BP-06519RO

PATIENT
  Age: 75 Year
  Sex: Female

DRUGS (3)
  1. METHOTREXATE [Suspect]
     Indication: RHEUMATOID ARTHRITIS
     Dosage: 5-7.5 MG PER WEEK (NR, 1 IN 1)
  2. PREDNISOLONE OR PREDNISONE (CORTICOSEROIDS) [Concomitant]
  3. BUCILLAMINE (BUCILLAMINE) [Concomitant]

REACTIONS (1)
  - HEPATITIS FULMINANT [None]
